FAERS Safety Report 17462682 (Version 1)
Quarter: 2020Q1

REPORT INFORMATION
  Report Type: Spontaneous
  Country: US (occurrence: US)
  Receive Date: 20200226
  Receipt Date: 20200226
  Transmission Date: 20200409
  Serious: Yes (Hospitalization)
  Sender: FDA-Public Use
  Company Number: US-TEVA-2020-US-1190230

PATIENT
  Age: 57 Year
  Sex: Female

DRUGS (5)
  1. CITALOPRAM [Suspect]
     Active Substance: CITALOPRAM HYDROBROMIDE
     Indication: ANXIETY
     Dosage: 20 MILLIGRAM DAILY;
     Route: 048
  2. PROPRANOLOL [Concomitant]
     Active Substance: PROPRANOLOL HYDROCHLORIDE
     Indication: PANIC ATTACK
     Route: 048
  3. VALPROIC ACID. [Suspect]
     Active Substance: VALPROIC ACID
     Indication: AFFECTIVE DISORDER
     Dosage: 1000 MILLIGRAM DAILY; 500 MG, TWICE DAILY
     Route: 048
  4. PROPRANOLOL [Concomitant]
     Active Substance: PROPRANOLOL HYDROCHLORIDE
     Indication: PANIC ATTACK
     Dosage: 40 MILLIGRAM DAILY; AND INCREASED
     Route: 048
  5. QUETIAPINE. [Concomitant]
     Active Substance: QUETIAPINE
     Indication: INSOMNIA
     Dosage: 200 MILLIGRAM DAILY; ADMINISTERED ONCE NIGHTLY
     Route: 048

REACTIONS (3)
  - Sinus tachycardia [Recovering/Resolving]
  - Electrocardiogram QT prolonged [Recovering/Resolving]
  - Hyperammonaemic encephalopathy [Recovered/Resolved]
